FAERS Safety Report 20000671 (Version 1)
Quarter: 2021Q4

REPORT INFORMATION
  Report Type: Spontaneous
  Country: US (occurrence: US)
  Receive Date: 20211026
  Receipt Date: 20211026
  Transmission Date: 20220303
  Serious: Yes (Other)
  Sender: FDA-Public Use
  Company Number: None

PATIENT
  Age: 64 Year
  Sex: Male
  Weight: 63.36 kg

DRUGS (4)
  1. PROPRANOLOL [Suspect]
     Active Substance: PROPRANOLOL HYDROCHLORIDE
     Route: 048
  2. DIVALPROEX SODIUM [Concomitant]
     Active Substance: DIVALPROEX SODIUM
  3. TAMSULOSIN [Concomitant]
     Active Substance: TAMSULOSIN
  4. HALOPERIDOL [Concomitant]
     Active Substance: HALOPERIDOL

REACTIONS (7)
  - Tremor [None]
  - Feeling cold [None]
  - Hypotension [None]
  - Oxygen saturation decreased [None]
  - Pneumonia aspiration [None]
  - Dizziness [None]
  - Dysphagia [None]

NARRATIVE: CASE EVENT DATE: 20210704
